FAERS Safety Report 12532127 (Version 2)
Quarter: 2016Q4

REPORT INFORMATION
  Report Type: Report from Study
  Country: JP (occurrence: JP)
  Receive Date: 20160706
  Receipt Date: 20161121
  Transmission Date: 20170207
  Serious: Yes (Death, Hospitalization, Other)
  Sender: FDA-Public Use
  Company Number: JP-ASTRAZENECA-2015SE20706

PATIENT
  Age: 24863 Day
  Sex: Male
  Weight: 62.3 kg

DRUGS (8)
  1. ATORVASTATIN [Suspect]
     Active Substance: ATORVASTATIN
     Indication: HYPERCHOLESTEROLAEMIA
     Route: 048
  2. AVOLVE [Concomitant]
     Active Substance: DUTASTERIDE
     Route: 048
  3. MYSLEE [Concomitant]
     Active Substance: ZOLPIDEM TARTRATE
     Route: 048
  4. ONGLYZA [Suspect]
     Active Substance: SAXAGLIPTIN HYDROCHLORIDE
     Indication: TYPE 2 DIABETES MELLITUS
     Route: 048
     Dates: start: 20140816, end: 20151117
  5. ONGLYZA [Suspect]
     Active Substance: SAXAGLIPTIN HYDROCHLORIDE
     Indication: TYPE 2 DIABETES MELLITUS
     Route: 048
     Dates: start: 20141118, end: 20160120
  6. ASPIRIN. [Concomitant]
     Active Substance: ASPIRIN
     Route: 048
  7. EXFORGE [Concomitant]
     Active Substance: AMLODIPINE BESYLATE\VALSARTAN
     Route: 048
  8. FLIVAS [Concomitant]
     Active Substance: NAFTOPIDIL
     Route: 048

REACTIONS (8)
  - Contusion [Unknown]
  - Rhabdomyolysis [Recovered/Resolved]
  - Fall [Unknown]
  - Gamma-glutamyltransferase increased [Not Recovered/Not Resolved]
  - Renal impairment [Recovering/Resolving]
  - Hepatic function abnormal [Unknown]
  - Hypokinesia [Unknown]
  - Death [Fatal]

NARRATIVE: CASE EVENT DATE: 20141117
